FAERS Safety Report 17267488 (Version 2)
Quarter: 2020Q3

REPORT INFORMATION
  Report Type: Report from Study
  Country: US (occurrence: US)
  Receive Date: 20200114
  Receipt Date: 20200117
  Transmission Date: 20201104
  Serious: Yes (Death, Other)
  Sender: FDA-Public Use
  Company Number: US-SHIONOGI, INC.-2019001322

PATIENT
  Age: 72 Year
  Sex: Male
  Weight: 53.5 kg

DRUGS (179)
  1. LOVENOX [Concomitant]
     Active Substance: ENOXAPARIN SODIUM
     Dosage: 40 MILLIGRAM, SINGLE
     Route: 058
     Dates: start: 20191208, end: 20191208
  2. SUBLIMAZE [Concomitant]
     Active Substance: FENTANYL CITRATE
     Dosage: 25 MICROGRAM, 3 HOURLY
     Route: 042
     Dates: start: 20191119, end: 20191211
  3. LASIX [Concomitant]
     Active Substance: FUROSEMIDE
     Dosage: 60 MILLIGRAM, SINGLE
     Route: 042
     Dates: start: 20191117, end: 20191117
  4. LASIX [Concomitant]
     Active Substance: FUROSEMIDE
     Dosage: 20 MILLIGRAM, SINGLE
     Route: 042
     Dates: start: 20191118, end: 20191118
  5. POTASSIUM CHLORIDE. [Concomitant]
     Active Substance: POTASSIUM CHLORIDE
     Indication: PRODUCT USED FOR UNKNOWN INDICATION
     Dosage: 40 MILLIEQUIVALENT, 1 PER 1 DAY
     Route: 042
     Dates: start: 20191117, end: 20191122
  6. POTASSIUM CHLORIDE. [Concomitant]
     Active Substance: POTASSIUM CHLORIDE
     Dosage: 20 MILLIEQUIVALENT, SINGLE
     Route: 042
     Dates: start: 20191207, end: 20191207
  7. POTASSIUM CHLORIDE. [Concomitant]
     Active Substance: POTASSIUM CHLORIDE
     Dosage: 40 MILLIEQUIVALENT, SINGLE
     Route: 042
     Dates: start: 20191216, end: 20191216
  8. XYLOCAIN [LIDOCAINE] [Concomitant]
     Dosage: 1 PERCENT
     Route: 065
     Dates: start: 20191207, end: 20191207
  9. MAGNESIUM SULFATE. [Concomitant]
     Active Substance: MAGNESIUM SULFATE
     Dosage: 2 GRAM
     Route: 042
     Dates: start: 20191203, end: 20191203
  10. MAGNESIUM SULFATE. [Concomitant]
     Active Substance: MAGNESIUM SULFATE
     Dosage: 2 GRAM
     Route: 042
     Dates: start: 20191209, end: 20191209
  11. MAGNESIUM SULFATE. [Concomitant]
     Active Substance: MAGNESIUM SULFATE
     Dosage: 2 GRAM
     Route: 042
     Dates: start: 201912, end: 201912
  12. MAGNESIUM SULFATE. [Concomitant]
     Active Substance: MAGNESIUM SULFATE
     Dosage: UNK
  13. MIDAZOLAM HCL [Concomitant]
     Active Substance: MIDAZOLAM HYDROCHLORIDE
     Indication: PRODUCT USED FOR UNKNOWN INDICATION
     Dosage: 2 MILLIGRAM
     Route: 042
     Dates: start: 20191120, end: 20191121
  14. K PHOS NEUTRAL [Concomitant]
     Active Substance: POTASSIUM PHOSPHATE, MONOBASIC\SODIUM PHOSPHATE, DIBASIC, ANHYDROUS\SODIUM PHOSPHATE, MONOBASIC, MONOHYDRATE
     Indication: PRODUCT USED FOR UNKNOWN INDICATION
     Dosage: 500 MILLIGRAM, SINGLE
     Route: 065
     Dates: start: 20191121, end: 20191122
  15. ZOFRAN [Concomitant]
     Active Substance: ONDANSETRON HYDROCHLORIDE
     Indication: PRODUCT USED FOR UNKNOWN INDICATION
     Dosage: 4 MILLIGRAM, SINGLE
     Route: 042
     Dates: start: 20191118, end: 20191118
  16. QUELICIN [Concomitant]
     Active Substance: SUCCINYLCHOLINE CHLORIDE
     Dosage: 85 MILLIGRAM, SINGLE
     Route: 042
     Dates: start: 20191207, end: 20191207
  17. DEXTROSE. [Concomitant]
     Active Substance: DEXTROSE
     Indication: HYPOGLYCAEMIA
     Dosage: UNK
     Route: 048
     Dates: start: 20191109, end: 20191127
  18. OXYIR [Concomitant]
     Active Substance: OXYCODONE HYDROCHLORIDE
     Indication: PAIN
     Dosage: 5 MILLIGRAM, 6 HOUR
     Dates: start: 20191211, end: 20191213
  19. ASPIRIN (E.C.) [Concomitant]
     Active Substance: ASPIRIN
     Indication: PRODUCT USED FOR UNKNOWN INDICATION
     Dosage: 81 MILLIGRAM, 1 PER 1 DAY
     Route: 048
     Dates: start: 20191110, end: 20191120
  20. CEFTOLOZANE SULFATE;TAZOBACTAM SODIUM [Concomitant]
     Active Substance: CEFTOLOZANE SULFATE\TAZOBACTAM SODIUM
     Indication: PRODUCT USED FOR UNKNOWN INDICATION
     Dosage: 3 GRAM, 8 HOUR
     Route: 042
     Dates: start: 20191123, end: 20191203
  21. PEPCID AC [Concomitant]
     Active Substance: FAMOTIDINE
     Indication: PRODUCT USED FOR UNKNOWN INDICATION
     Dosage: 40 MILLIGRAM, BID
     Route: 065
     Dates: start: 20191122, end: 20191222
  22. FLORINEF ACETATE [Concomitant]
     Active Substance: FLUDROCORTISONE ACETATE
     Indication: PRODUCT USED FOR UNKNOWN INDICATION
     Dosage: 0.05 MILLIGRAM
     Dates: start: 20191204, end: 20191211
  23. SOLU?CORTEF [Concomitant]
     Active Substance: HYDROCORTISONE SODIUM SUCCINATE
     Dosage: 50 MILLIGRAM, 8 HOUR
     Route: 042
     Dates: start: 20191204, end: 20191209
  24. TOBRAMYCIN SULPHATE [Concomitant]
     Dosage: 300 MILLIGRAM, 12 HOUR
     Route: 065
     Dates: start: 20191203, end: 20191213
  25. ASPIRIN 81 [Concomitant]
     Active Substance: ASPIRIN
     Indication: PRODUCT USED FOR UNKNOWN INDICATION
     Dosage: 81 MILLIGRAM, DAILY
     Route: 048
     Dates: start: 20191221, end: 201912
  26. POLYMYXIN B. [Suspect]
     Active Substance: POLYMYXIN B
     Indication: PSEUDOMONAS INFECTION
     Dosage: 1600000 UNITS UNK
     Route: 065
     Dates: start: 20191203, end: 20191203
  27. ETOMIDATE. [Concomitant]
     Active Substance: ETOMIDATE
     Dosage: 20 MILLIGRAM, SINGLE
     Route: 042
     Dates: start: 20191207, end: 20191207
  28. SUBLIMAZE [Concomitant]
     Active Substance: FENTANYL CITRATE
     Indication: PRODUCT USED FOR UNKNOWN INDICATION
     Dosage: 25 MICROGRAM, SINGLE
     Route: 042
     Dates: start: 20191118, end: 20191118
  29. SUBLIMAZE [Concomitant]
     Active Substance: FENTANYL CITRATE
     Dosage: 50 MICROGRAM, SINGLE
     Route: 042
     Dates: start: 20191204, end: 20191204
  30. SUBLIMAZE [Concomitant]
     Active Substance: FENTANYL CITRATE
     Dosage: 25 MICROGRAM, 4 HOURLY
     Route: 042
     Dates: start: 20191120, end: 20191221
  31. LASIX [Concomitant]
     Active Substance: FUROSEMIDE
     Dosage: 40 MILLIGRAM, SINGLE
     Route: 042
     Dates: start: 20191118, end: 20191118
  32. LASIX [Concomitant]
     Active Substance: FUROSEMIDE
     Dosage: 20 MILLIGRAM, SINGLE
     Route: 042
     Dates: start: 20191201, end: 20191201
  33. HEPARIN 1000 [Concomitant]
     Dosage: 1000 UNK IU
     Dates: start: 20191129, end: 20191129
  34. DILAUDID [Concomitant]
     Active Substance: HYDROMORPHONE HYDROCHLORIDE
     Indication: PRODUCT USED FOR UNKNOWN INDICATION
     Dosage: 0.5 UNK
     Route: 042
     Dates: start: 20191119, end: 20191119
  35. DILAUDID [Concomitant]
     Active Substance: HYDROMORPHONE HYDROCHLORIDE
     Dosage: 2 MILLIGRAM, SINGLE
     Route: 042
     Dates: start: 20191211, end: 20191211
  36. POTASSIUM CHLORIDE. [Concomitant]
     Active Substance: POTASSIUM CHLORIDE
     Dosage: 40 MILLIEQUIVALENT, SINGLE
     Route: 042
     Dates: start: 20191118, end: 20191118
  37. POTASSIUM CHLORIDE. [Concomitant]
     Active Substance: POTASSIUM CHLORIDE
     Dosage: 20 MILLIEQUIVALENT, SINGLE
     Route: 042
     Dates: start: 20191206, end: 20191206
  38. POTASSIUM CHLORIDE. [Concomitant]
     Active Substance: POTASSIUM CHLORIDE
     Dosage: 40 MILLIEQUIVALENT, SINGLE
     Route: 042
     Dates: start: 20191118, end: 20191118
  39. POTASSIUM CHLORIDE. [Concomitant]
     Active Substance: POTASSIUM CHLORIDE
     Dosage: 40 MILLIEQUIVALENT, SINGLE
     Route: 042
     Dates: start: 20191120, end: 20191120
  40. POTASSIUM CHLORIDE. [Concomitant]
     Active Substance: POTASSIUM CHLORIDE
     Dosage: 40 MILLIEQUIVALENT, SINGLE
     Route: 042
     Dates: start: 20191209, end: 20191209
  41. MAGNESIUM SULFATE. [Concomitant]
     Active Substance: MAGNESIUM SULFATE
     Dosage: 2 GRAM
     Route: 042
     Dates: start: 20191212, end: 20191212
  42. K?PHOS NEUTRAL [Concomitant]
     Active Substance: POTASSIUM PHOSPHATE\SODIUM PHOSPHATE
     Indication: PRODUCT USED FOR UNKNOWN INDICATION
     Dosage: 64.166 ML/HR, UNK
     Dates: start: 20191129, end: 20191129
  43. GLUCAGON. [Concomitant]
     Active Substance: GLUCAGON
     Indication: HYPOGLYCAEMIA
     Dosage: 1 MILLIGRAM
     Route: 030
     Dates: start: 20191109, end: 20191127
  44. PROPOFOL. [Concomitant]
     Active Substance: PROPOFOL
     Indication: SEDATION
     Dosage: 100 MILLILITER
     Route: 042
     Dates: start: 20191209, end: 20191211
  45. PRECEDEX [Concomitant]
     Active Substance: DEXMEDETOMIDINE HYDROCHLORIDE
     Indication: PRODUCT USED FOR UNKNOWN INDICATION
     Dosage: 1000 MICROGRAM
     Route: 042
     Dates: start: 20191109, end: 20191119
  46. CARDIZEM [DILTIAZEM HYDROCHLORIDE] [Concomitant]
     Active Substance: DILTIAZEM HYDROCHLORIDE
     Indication: PRODUCT USED FOR UNKNOWN INDICATION
     Dosage: 30 MILLIGRAM, 6 HOUR
     Route: 048
     Dates: start: 20191114, end: 20191118
  47. HEPARIN SODIUM. [Concomitant]
     Active Substance: HEPARIN SODIUM
     Dosage: 25000 UNITS, UNK
     Route: 042
     Dates: start: 20191111, end: 20191121
  48. SOLU?CORTEF [Concomitant]
     Active Substance: HYDROCORTISONE SODIUM SUCCINATE
     Indication: PRODUCT USED FOR UNKNOWN INDICATION
     Dosage: 50 MILLIGRAM, 8 HOUR
     Route: 042
     Dates: start: 20191113, end: 20191118
  49. SOLU?CORTEF [Concomitant]
     Active Substance: HYDROCORTISONE SODIUM SUCCINATE
     Dosage: 50 MILLIGRAM, 6 HOUR
     Route: 042
     Dates: start: 20191118, end: 20191121
  50. SOLU?CORTEF [Concomitant]
     Active Substance: HYDROCORTISONE SODIUM SUCCINATE
     Dosage: 50 MILLIGRAM, SINGLE
     Route: 042
     Dates: start: 20191212, end: 20191213
  51. SOLU?CORTEF [Concomitant]
     Active Substance: HYDROCORTISONE SODIUM SUCCINATE
     Dosage: 50 MILLIGRAM, 6 HOUR
     Route: 042
     Dates: start: 20191213, end: 20191216
  52. NORMAL SALINE [Concomitant]
     Active Substance: SODIUM CHLORIDE
     Indication: PRODUCT USED FOR UNKNOWN INDICATION
     Dosage: 100 MILLILITER, SINGLE
     Route: 042
     Dates: start: 20191121, end: 20191121
  53. HUMULIN R [Concomitant]
     Active Substance: INSULIN HUMAN
     Dosage: UNK
     Route: 058
     Dates: start: 20191209, end: 20191211
  54. DIURIL [CHLOROTHIAZIDE SODIUM] [Concomitant]
     Indication: PRODUCT USED FOR UNKNOWN INDICATION
     Dosage: 500 MILLIGRAM, SINGLE
     Route: 042
     Dates: start: 20191123, end: 20191123
  55. ETOMIDATE. [Concomitant]
     Active Substance: ETOMIDATE
     Indication: PRODUCT USED FOR UNKNOWN INDICATION
     Dosage: 30 MILLIGRAM, SINGLE
     Route: 042
     Dates: start: 20191120, end: 20191120
  56. SUBLIMAZE [Concomitant]
     Active Substance: FENTANYL CITRATE
     Dosage: 25 MICROGRAM, SINGLE
     Route: 042
     Dates: start: 20191203, end: 20191203
  57. SUBLIMAZE [Concomitant]
     Active Substance: FENTANYL CITRATE
     Dosage: 50 MICROGRAM, SINGLE
     Route: 042
     Dates: start: 20191209, end: 20191209
  58. SUBLIMAZE [Concomitant]
     Active Substance: FENTANYL CITRATE
     Dosage: 25 MICROGRAM, SINGLE
     Route: 042
     Dates: start: 20191118, end: 20191118
  59. LASIX [Concomitant]
     Active Substance: FUROSEMIDE
     Dosage: 40 MILLIGRAM, BID
     Route: 042
     Dates: start: 20191210, end: 20191212
  60. LASIX [Concomitant]
     Active Substance: FUROSEMIDE
     Dosage: 40 MILLIGRAM, BID
     Route: 042
     Dates: start: 20191219, end: 20191220
  61. GLYCERIN ADULT [Concomitant]
     Active Substance: GLYCERIN
     Dosage: UNK, SINGLE
     Route: 054
     Dates: start: 20191119, end: 20191119
  62. POTASSIUM CHLORIDE. [Concomitant]
     Active Substance: POTASSIUM CHLORIDE
     Dosage: 20 MILLIEQUIVALENT, SINGLE
     Route: 042
     Dates: start: 20191207, end: 20191207
  63. POTASSIUM CHLORIDE. [Concomitant]
     Active Substance: POTASSIUM CHLORIDE
     Dosage: 40 MILLIEQUIVALENT, SINGLE
     Route: 042
     Dates: start: 20191206, end: 20191206
  64. POTASSIUM CHLORIDE. [Concomitant]
     Active Substance: POTASSIUM CHLORIDE
     Dosage: 40 MILLIEQUIVALENT, SINGLE
     Route: 042
     Dates: start: 20191211, end: 20191211
  65. MAGNESIUM SULFATE. [Concomitant]
     Active Substance: MAGNESIUM SULFATE
     Dosage: 2 GRAM
     Route: 042
     Dates: start: 20191214, end: 20191215
  66. MAGNESIUM SULFATE. [Concomitant]
     Active Substance: MAGNESIUM SULFATE
     Dosage: UNK
  67. MIDAZOLAM HCL [Concomitant]
     Active Substance: MIDAZOLAM HYDROCHLORIDE
     Dosage: 4 MILLIGRAM
     Route: 042
     Dates: start: 20191209, end: 20191209
  68. MIDAZOLAM HCL [Concomitant]
     Active Substance: MIDAZOLAM HYDROCHLORIDE
     Dosage: 4 MILLIGRAM
     Route: 042
     Dates: start: 20191211, end: 20191211
  69. PHENYLEPHRINE [Concomitant]
     Active Substance: PHENYLEPHRINE HYDROCHLORIDE
     Dosage: 100 MCG/ 10 ML UNK
     Dates: start: 20191213, end: 20191219
  70. K?PHOS NEUTRAL [Concomitant]
     Active Substance: POTASSIUM PHOSPHATE\SODIUM PHOSPHATE
     Dosage: 64.166 ML/HR, UNK
     Dates: start: 20191201, end: 20191201
  71. K?DUR [Concomitant]
     Active Substance: POTASSIUM CHLORIDE
     Dosage: 40 MILLIEQUIVALENT, SINGLE
     Route: 048
     Dates: start: 20191219, end: 20191219
  72. K?LOR [Concomitant]
     Active Substance: POTASSIUM CHLORIDE
     Dosage: 40 MILLIEQUIVALENT, 2 PACKETS
     Route: 065
     Dates: start: 20191213, end: 20191213
  73. HYDROCODONE [Concomitant]
     Active Substance: HYDROCODONE
     Indication: PAIN
     Dosage: 0.5 MILLIGRAM, 6 PER 1 DAY
     Route: 048
     Dates: start: 20191211, end: 20191212
  74. LIPITOR [Concomitant]
     Active Substance: ATORVASTATIN CALCIUM
     Indication: PRODUCT USED FOR UNKNOWN INDICATION
     Dosage: 80 MILLIGRAM, 1 PER 1 DAY
     Route: 048
     Dates: start: 20191110, end: 20191120
  75. PRECEDEX [Concomitant]
     Active Substance: DEXMEDETOMIDINE HYDROCHLORIDE
     Dosage: 1000 MICROGRAM
     Route: 042
     Dates: start: 20191207, end: 20191211
  76. LOVENOX HP [Concomitant]
     Active Substance: ENOXAPARIN SODIUM
     Indication: PRODUCT USED FOR UNKNOWN INDICATION
     Dosage: 40 MILLIGRAM
     Route: 058
     Dates: start: 20191202, end: 20191203
  77. FENTANYL. [Concomitant]
     Active Substance: FENTANYL
     Indication: PRODUCT USED FOR UNKNOWN INDICATION
     Dosage: 2000 MICROGRAM  UNK
     Route: 042
     Dates: start: 20191115, end: 20191119
  78. SOLU?CORTEF [Concomitant]
     Active Substance: HYDROCORTISONE SODIUM SUCCINATE
     Dosage: 50 MILLIGRAM, BID
     Route: 042
     Dates: start: 20191118, end: 20191118
  79. REMERON [Concomitant]
     Active Substance: MIRTAZAPINE
     Indication: PRODUCT USED FOR UNKNOWN INDICATION
     Dosage: 7.5 MILLIGRAM
     Dates: start: 20191119, end: 20191129
  80. LEVOPHED BITARTRATE [Concomitant]
     Indication: PRODUCT USED FOR UNKNOWN INDICATION
     Dosage: 4 MILLIGRAM
     Route: 042
     Dates: start: 20191130, end: 20191130
  81. LEVOPHED BITARTRATE [Concomitant]
     Dosage: 16 MILLIGRAM
     Route: 042
     Dates: start: 20191120, end: 20191123
  82. BROVANA [Concomitant]
     Active Substance: ARFORMOTEROL TARTRATE
     Indication: PRODUCT USED FOR UNKNOWN INDICATION
     Dosage: 15 MICROGRAM, BID
     Dates: start: 20191116
  83. SUBLIMAZE [Concomitant]
     Active Substance: FENTANYL CITRATE
     Dosage: 75 MICROGRAM, SINGLE
     Route: 042
     Dates: start: 20191120, end: 20191120
  84. SUBLIMAZE [Concomitant]
     Active Substance: FENTANYL CITRATE
     Dosage: UNK UNK, SINGLE
     Route: 042
     Dates: start: 20191129, end: 20191129
  85. SUBLIMAZE [Concomitant]
     Active Substance: FENTANYL CITRATE
     Dosage: 50 MICROGRAM, SINGLE
     Route: 042
     Dates: start: 20191119, end: 20191119
  86. LASIX [Concomitant]
     Active Substance: FUROSEMIDE
     Dosage: 40 MILLIGRAM, 8 HOUR
     Route: 042
     Dates: start: 20191214, end: 20191215
  87. POTASSIUM CHLORIDE. [Concomitant]
     Active Substance: POTASSIUM CHLORIDE
     Dosage: 40 MILLIEQUIVALENT, SINGLE
     Route: 042
     Dates: start: 20191209, end: 20191209
  88. XYLOCAIN [LIDOCAINE] [Concomitant]
     Indication: PRODUCT USED FOR UNKNOWN INDICATION
     Dosage: 1 PERCENT
     Route: 065
     Dates: start: 20191129, end: 20191129
  89. XYLOCAIN [LIDOCAINE] [Concomitant]
     Dosage: 2 PERCENT
     Route: 065
     Dates: start: 20191207, end: 20191207
  90. MIDAZOLAM HCL [Concomitant]
     Active Substance: MIDAZOLAM HYDROCHLORIDE
     Dosage: 2 MILLIGRAM
     Route: 042
     Dates: start: 20191129, end: 20191129
  91. K PHOS NEUTRAL [Concomitant]
     Active Substance: POTASSIUM PHOSPHATE, MONOBASIC\SODIUM PHOSPHATE, DIBASIC, ANHYDROUS\SODIUM PHOSPHATE, MONOBASIC, MONOHYDRATE
     Dosage: UNK UNK, 6 HOUR
     Route: 065
     Dates: start: 20191123, end: 20191123
  92. K?DUR [Concomitant]
     Active Substance: POTASSIUM CHLORIDE
     Indication: PRODUCT USED FOR UNKNOWN INDICATION
     Dosage: 40 MILLIEQUIVALENT, SINGLE
     Route: 048
     Dates: start: 20191211, end: 20191211
  93. DUONEB [Concomitant]
     Active Substance: ALBUTEROL SULFATE\IPRATROPIUM BROMIDE
     Indication: PRODUCT USED FOR UNKNOWN INDICATION
     Dosage: 0.5 MILLIGRAM, 6 HOUR
     Route: 065
     Dates: start: 20191109, end: 20191118
  94. DIFLUCAN [Concomitant]
     Active Substance: FLUCONAZOLE
     Indication: PRODUCT USED FOR UNKNOWN INDICATION
     Dosage: 200 MILLIGRAM
     Route: 065
     Dates: start: 20191202, end: 20191208
  95. MERREM [Concomitant]
     Active Substance: MEROPENEM
     Dosage: 2 GRAM, 8 HOUR
     Dates: start: 20191203, end: 20191206
  96. LEVOPHED BITARTRATE [Concomitant]
     Dosage: 16 MILLIGRAM
     Route: 042
     Dates: start: 20191212, end: 20191213
  97. LEVOPHED BITARTRATE [Concomitant]
     Dosage: 16 MILLIGRAM
     Route: 042
     Dates: start: 20191113, end: 20191206
  98. NORMAL SALINE [Concomitant]
     Active Substance: SODIUM CHLORIDE
     Dosage: 500 MILLILITER, 24 HOUR
     Route: 042
     Dates: start: 20191122, end: 20191124
  99. NORMAL SALINE [Concomitant]
     Active Substance: SODIUM CHLORIDE
     Dosage: 100 MILLILITER, SINGLE
     Route: 042
     Dates: start: 20191122, end: 20191126
  100. NORMAL SALINE [Concomitant]
     Active Substance: SODIUM CHLORIDE
     Dosage: 100 MILLILITER, UNK
     Route: 042
     Dates: start: 20191203, end: 20191207
  101. PULMICORT TURBUHALER [Concomitant]
     Active Substance: BUDESONIDE
     Indication: PRODUCT USED FOR UNKNOWN INDICATION
     Dosage: 0.5 MILLIGRAM, BID
     Dates: start: 20191121
  102. ACTIVASE [Concomitant]
     Active Substance: ALTEPLASE
     Indication: PRODUCT USED FOR UNKNOWN INDICATION
     Dosage: 2 MILLIGRAM, SINGLE
     Route: 042
     Dates: start: 20191118, end: 20191118
  103. BACITRACIN. [Concomitant]
     Active Substance: BACITRACIN
     Indication: PRODUCT USED FOR UNKNOWN INDICATION
     Dosage: 0.94 MILLIGRAM, SINGLE
     Route: 061
     Dates: start: 20191209, end: 20191209
  104. LASIX [Concomitant]
     Active Substance: FUROSEMIDE
     Dosage: 40 MILLIGRAM, SINGLE
     Route: 042
     Dates: start: 20191119, end: 20191119
  105. LASIX [Concomitant]
     Active Substance: FUROSEMIDE
     Dosage: 20 MILLIGRAM, SINGLE
     Route: 042
     Dates: start: 20191205, end: 20191205
  106. LASIX [Concomitant]
     Active Substance: FUROSEMIDE
     Dosage: 40 MILLIGRAM, SINGLE
     Route: 042
     Dates: start: 20191213, end: 20191213
  107. POTASSIUM CHLORIDE. [Concomitant]
     Active Substance: POTASSIUM CHLORIDE
     Dosage: 20 MILLIEQUIVALENT, SINGLE
     Route: 042
     Dates: start: 20191208, end: 20191208
  108. POTASSIUM CHLORIDE. [Concomitant]
     Active Substance: POTASSIUM CHLORIDE
     Dosage: 40 MILLIEQUIVALENT, SINGLE
     Route: 042
     Dates: start: 20191211, end: 20191212
  109. POTASSIUM CHLORIDE. [Concomitant]
     Active Substance: POTASSIUM CHLORIDE
     Dosage: 40 MILLIEQUIVALENT, SINGLE
     Route: 042
     Dates: start: 20191216, end: 20191217
  110. MAGNESIUM SULFATE. [Concomitant]
     Active Substance: MAGNESIUM SULFATE
     Indication: PRODUCT USED FOR UNKNOWN INDICATION
     Dosage: 4 GRAM
     Route: 042
     Dates: start: 20191129, end: 20191129
  111. POTASSIUM ACETATE. [Concomitant]
     Active Substance: POTASSIUM ACETATE
     Indication: PRODUCT USED FOR UNKNOWN INDICATION
     Dosage: 40 MILLIEQUIVALENT
     Route: 042
     Dates: start: 20191124, end: 20191124
  112. K?LOR [Concomitant]
     Active Substance: POTASSIUM CHLORIDE
     Indication: PRODUCT USED FOR UNKNOWN INDICATION
     Dosage: 40 MILLIEQUIVALENT, 2 PACKETS
     Route: 065
     Dates: start: 20191211, end: 20191211
  113. K?LOR [Concomitant]
     Active Substance: POTASSIUM CHLORIDE
     Dosage: 40 MILLIEQUIVALENT, 2 PACKETS
     Route: 065
     Dates: start: 20191214, end: 20191214
  114. QUELICIN [Concomitant]
     Active Substance: SUCCINYLCHOLINE CHLORIDE
     Dosage: 85 MILLIGRAM, SINGLE
     Route: 042
     Dates: start: 20191207, end: 20191207
  115. CORDARONE [Concomitant]
     Active Substance: AMIODARONE HYDROCHLORIDE
     Indication: PRODUCT USED FOR UNKNOWN INDICATION
     Dosage: 200 MILLIGRAM, BID
     Route: 048
     Dates: start: 20191115, end: 20191126
  116. LOVENOX HP [Concomitant]
     Active Substance: ENOXAPARIN SODIUM
     Dosage: 40 MILLIGRAM
     Route: 058
     Dates: start: 20191212, end: 20191217
  117. HEPARIN SODIUM. [Concomitant]
     Active Substance: HEPARIN SODIUM
     Indication: PRODUCT USED FOR UNKNOWN INDICATION
     Dosage: UNK
     Route: 042
     Dates: start: 20191110, end: 20191121
  118. REMERON [Concomitant]
     Active Substance: MIRTAZAPINE
     Dosage: 7.5 MILLIGRAM UNK
     Dates: start: 20191129, end: 20191206
  119. PROTONIX [Concomitant]
     Active Substance: PANTOPRAZOLE SODIUM
     Indication: PRODUCT USED FOR UNKNOWN INDICATION
     Dosage: 40 MILLIGRAM
     Route: 042
     Dates: start: 20191109, end: 20191122
  120. SODIUM CHLORIDE. [Concomitant]
     Active Substance: SODIUM CHLORIDE
     Indication: PRODUCT USED FOR UNKNOWN INDICATION
     Dosage: 7 PERCENT, 6 HOUR
     Dates: start: 20191115, end: 20191118
  121. SODIUM CHLORIDE. [Concomitant]
     Active Substance: SODIUM CHLORIDE
     Dosage: 7 PERCENT, 4 PER 1 DAY
     Dates: start: 20191118, end: 20191217
  122. TOBRAMYCIN SULPHATE [Concomitant]
     Dosage: 370 MILLIGRAM
     Route: 042
     Dates: start: 20191204, end: 20191204
  123. DIAMOX CAMPUS [Concomitant]
     Indication: PRODUCT USED FOR UNKNOWN INDICATION
     Dosage: 500 MILLIGRAM, SINGLE
     Route: 042
     Dates: start: 20191119, end: 20191119
  124. LASIX [Concomitant]
     Active Substance: FUROSEMIDE
     Dosage: 40 MILLIGRAM, 1 PER 1 DAY
     Route: 042
     Dates: start: 20191210, end: 20191210
  125. LASIX [Concomitant]
     Active Substance: FUROSEMIDE
     Dosage: 40 MILLIGRAM, 6 HOUR
     Route: 042
     Dates: start: 20191215, end: 20191217
  126. HEPARIN 1000 [Concomitant]
     Indication: PRODUCT USED FOR UNKNOWN INDICATION
     Dosage: 1000 UNK IU
     Route: 065
     Dates: start: 20191129, end: 20191129
  127. ISOVUE 300 [Concomitant]
     Active Substance: IOPAMIDOL
     Indication: PRODUCT USED FOR UNKNOWN INDICATION
     Dosage: 50 MILLILITER
     Route: 065
     Dates: start: 20191129, end: 20191129
  128. MAGNESIUM SULFATE. [Concomitant]
     Active Substance: MAGNESIUM SULFATE
     Dosage: 2 GRAM
     Route: 042
     Dates: start: 20191205, end: 20191207
  129. MIDAZOLAM HCL [Concomitant]
     Active Substance: MIDAZOLAM HYDROCHLORIDE
     Dosage: 4 MILLIGRAM
     Route: 042
     Dates: start: 20191204, end: 20191204
  130. K PHOS NEUTRAL [Concomitant]
     Active Substance: POTASSIUM PHOSPHATE, MONOBASIC\SODIUM PHOSPHATE, DIBASIC, ANHYDROUS\SODIUM PHOSPHATE, MONOBASIC, MONOHYDRATE
     Dosage: UNK UNK, 6 HOUR
     Route: 065
     Dates: start: 20191203, end: 20191203
  131. PHENYLEPHRINE [Concomitant]
     Active Substance: PHENYLEPHRINE HYDROCHLORIDE
     Indication: PRODUCT USED FOR UNKNOWN INDICATION
     Dosage: 100 MCG/ 10 ML UNK
     Dates: start: 20191211, end: 20191211
  132. COLISTIN [Concomitant]
     Active Substance: COLISTIN
     Indication: PRODUCT USED FOR UNKNOWN INDICATION
     Route: 065
  133. PRECEDEX [Concomitant]
     Active Substance: DEXMEDETOMIDINE HYDROCHLORIDE
     Dosage: 1000 MICROGRAM
     Route: 042
     Dates: start: 20191120, end: 20191206
  134. GABAPENTIN. [Concomitant]
     Active Substance: GABAPENTIN
     Indication: PRODUCT USED FOR UNKNOWN INDICATION
     Dosage: 100 MILLIGRAM, BID
     Dates: start: 20191119, end: 20191120
  135. SOLU?CORTEF [Concomitant]
     Active Substance: HYDROCORTISONE SODIUM SUCCINATE
     Dosage: 50 MILLIGRAM, 12 HOUR
     Route: 042
     Dates: start: 20191209, end: 20191210
  136. SENOKOT [Concomitant]
     Active Substance: SENNOSIDES
     Dosage: 50 MILLIGRAM, 12 HOUR
     Route: 065
     Dates: start: 20191119, end: 20191119
  137. NORMAL SALINE [Concomitant]
     Active Substance: SODIUM CHLORIDE
     Dosage: 100 MILLILITER, UNK
     Route: 042
     Dates: start: 20191128, end: 20191202
  138. CARAFATE [Concomitant]
     Active Substance: SUCRALFATE
     Indication: PRODUCT USED FOR UNKNOWN INDICATION
     Dosage: 1 GRAM, 4 PER 1 DAY
     Route: 065
     Dates: start: 20191124, end: 20191202
  139. LACTATED RINGERS SOLUTION [Concomitant]
     Active Substance: CALCIUM CHLORIDE\POTASSIUM CHLORIDE\SODIUM CHLORIDE\SODIUM LACTATE
     Indication: PRODUCT USED FOR UNKNOWN INDICATION
     Dosage: 1000 MILLILITER
     Route: 042
     Dates: start: 20191124, end: 20191124
  140. CEFIDEROCOL. [Suspect]
     Active Substance: CEFIDEROCOL
     Dosage: 1.5 GRAM, 8 HOUR
     Route: 042
     Dates: start: 20191216, end: 20191223
  141. POLYMYXIN B. [Suspect]
     Active Substance: POLYMYXIN B
     Dosage: 813000 UNITS, UNK
     Route: 065
     Dates: start: 20191204
  142. PLASMALYTE [Concomitant]
     Active Substance: ELECTROLYTES NOS
     Dosage: 1000 MILLILITER
     Route: 042
     Dates: start: 20191212, end: 20191212
  143. LASIX [Concomitant]
     Active Substance: FUROSEMIDE
     Dosage: 40 MILLIGRAM, 1 PER 1 DAY
     Route: 042
     Dates: start: 20191206, end: 20191209
  144. POTASSIUM CHLORIDE. [Concomitant]
     Active Substance: POTASSIUM CHLORIDE
     Dosage: 40 MILLIEQUIVALENT, SINGLE
     Route: 042
     Dates: start: 20191125, end: 20191125
  145. POTASSIUM CHLORIDE. [Concomitant]
     Active Substance: POTASSIUM CHLORIDE
     Dosage: 40 MILLIEQUIVALENT, SINGLE
     Route: 042
     Dates: start: 20191215, end: 20191215
  146. KETALAR [Concomitant]
     Active Substance: KETAMINE HYDROCHLORIDE
     Indication: PRODUCT USED FOR UNKNOWN INDICATION
     Dosage: 100 MILLIGRAM, BID
     Route: 042
     Dates: start: 20191207, end: 20191207
  147. MAGNESIUM SULFATE. [Concomitant]
     Active Substance: MAGNESIUM SULFATE
     Dosage: 4 GRAM
     Route: 042
     Dates: start: 20191211, end: 20191211
  148. MAGNESIUM SULFATE. [Concomitant]
     Active Substance: MAGNESIUM SULFATE
     Dosage: UNK
  149. MIDAZOLAM HCL [Concomitant]
     Active Substance: MIDAZOLAM HYDROCHLORIDE
     Dosage: 2 MILLIGRAM
     Route: 042
     Dates: start: 20191203, end: 20191203
  150. AFRIN [Concomitant]
     Active Substance: OXYMETAZOLINE
     Indication: NASAL DRYNESS
     Dosage: UNK, 8 HOURS
     Dates: start: 20191112, end: 20191127
  151. BENADRYL [Concomitant]
     Active Substance: DIPHENHYDRAMINE HYDROCHLORIDE
     Indication: PRODUCT USED FOR UNKNOWN INDICATION
     Dosage: 25 MILLIGRAM, 1 PER 1 DAY
     Route: 042
     Dates: start: 20191214, end: 20191216
  152. SENOKOT [Concomitant]
     Active Substance: SENNOSIDES
     Indication: PRODUCT USED FOR UNKNOWN INDICATION
     Dosage: 50 MILLIGRAM, BID
     Route: 065
     Dates: start: 20191112, end: 20191119
  153. CEFIDEROCOL. [Suspect]
     Active Substance: CEFIDEROCOL
     Indication: PSEUDOMONAS INFECTION
     Dosage: 2 GRAM, 8 HOUR
     Route: 042
     Dates: start: 20191203, end: 20191216
  154. TYLENOL EXTRA STRENGTH [Concomitant]
     Active Substance: ACETAMINOPHEN
     Indication: PRODUCT USED FOR UNKNOWN INDICATION
     Dosage: 500 MILLIGRAM, SINGLE
     Route: 048
     Dates: start: 20191121, end: 20191121
  155. TYLENOL EXTRA STRENGTH [Concomitant]
     Active Substance: ACETAMINOPHEN
     Dosage: 500 MILLIGRAM, 6 HOUR
     Route: 048
     Dates: start: 20191118, end: 20191218
  156. HUMAN ALBUMIN [Concomitant]
     Active Substance: ALBUMIN HUMAN
     Indication: PRODUCT USED FOR UNKNOWN INDICATION
     Dosage: 25 MILLIGRAM, SINGLE
     Route: 042
     Dates: start: 20191213, end: 20191213
  157. NIMBEX [NIMESULIDE] [Concomitant]
     Active Substance: NIMESULIDE
     Indication: PRODUCT USED FOR UNKNOWN INDICATION
     Dosage: 15 MILLIGRAM, SINGLE
     Route: 042
     Dates: start: 20191123, end: 20191123
  158. PLASMALYTE [Concomitant]
     Active Substance: ELECTROLYTES NOS
     Indication: PRODUCT USED FOR UNKNOWN INDICATION
     Dosage: 250 MILLILITER
     Route: 042
     Dates: start: 20191129, end: 20191129
  159. PLASMALYTE [Concomitant]
     Active Substance: ELECTROLYTES NOS
     Dosage: 1000 MILLILITER
     Route: 042
     Dates: start: 20191130, end: 20191130
  160. SUBLIMAZE [Concomitant]
     Active Substance: FENTANYL CITRATE
     Dosage: 150 MICROGRAM, SINGLE
     Route: 042
     Dates: start: 20191121, end: 20191121
  161. SUBLIMAZE [Concomitant]
     Active Substance: FENTANYL CITRATE
     Dosage: UNK
  162. LASIX [Concomitant]
     Active Substance: FUROSEMIDE
     Dosage: 20 MILLIGRAM, BID
     Route: 042
     Dates: start: 20191119, end: 20191121
  163. LASIX [Concomitant]
     Active Substance: FUROSEMIDE
     Dosage: 20 MILLIGRAM, SINGLE
     Route: 042
     Dates: start: 20191201, end: 20191201
  164. MOTRIN [Concomitant]
     Active Substance: IBUPROFEN
     Indication: PRODUCT USED FOR UNKNOWN INDICATION
     Dosage: 400 MILLIGRAM, SINGLE
     Route: 048
     Dates: start: 20191211, end: 20191211
  165. POTASSIUM CHLORIDE. [Concomitant]
     Active Substance: POTASSIUM CHLORIDE
     Dosage: UNK
  166. XYLOCAIN [LIDOCAINE] [Concomitant]
     Dosage: 1 PERCENT
     Route: 065
     Dates: start: 20191203, end: 20191203
  167. MAGNESIUM SULFATE. [Concomitant]
     Active Substance: MAGNESIUM SULFATE
     Dosage: 1 GRAM
     Route: 042
     Dates: start: 20191207, end: 20191207
  168. MAGNESIUM SULFATE. [Concomitant]
     Active Substance: MAGNESIUM SULFATE
     Dosage: 2 GRAM
     Route: 042
     Dates: start: 20191218, end: 20191218
  169. SOLU?MEDROL [Concomitant]
     Active Substance: METHYLPREDNISOLONE SODIUM SUCCINATE
     Indication: PRODUCT USED FOR UNKNOWN INDICATION
     Dosage: 80 MILLIGRAM, BID
     Dates: start: 20191119, end: 20191119
  170. K PHOS NEUTRAL [Concomitant]
     Active Substance: POTASSIUM PHOSPHATE, MONOBASIC\SODIUM PHOSPHATE, DIBASIC, ANHYDROUS\SODIUM PHOSPHATE, MONOBASIC, MONOHYDRATE
     Dosage: UNK UNK, 6 HOUR
     Route: 065
     Dates: start: 20191125, end: 20191125
  171. K?LOR [Concomitant]
     Active Substance: POTASSIUM CHLORIDE
     Dosage: 40 MILLIEQUIVALENT, 2 PACKETS
     Route: 065
     Dates: start: 20191209, end: 20191209
  172. K?LOR [Concomitant]
     Active Substance: POTASSIUM CHLORIDE
     Dosage: 40 MILLIEQUIVALENT, 2 PACKETS
     Route: 065
     Dates: start: 20191122, end: 20191122
  173. HUMALOG [Concomitant]
     Active Substance: INSULIN LISPRO
     Indication: HYPERGLYCAEMIA
     Dosage: 8 UNITS, UNK
     Route: 058
     Dates: start: 20191109, end: 20191209
  174. DEFINITY [Concomitant]
     Active Substance: PERFLUTREN
     Indication: RADIOTHERAPY
     Dosage: UNK
     Route: 065
     Dates: start: 20191115, end: 20191118
  175. GABAPENTIN. [Concomitant]
     Active Substance: GABAPENTIN
     Dosage: UNK
     Dates: start: 20191121, end: 20191213
  176. HUMULIN N [Concomitant]
     Active Substance: INSULIN HUMAN
     Indication: PRODUCT USED FOR UNKNOWN INDICATION
     Dosage: 4 UNITS TID
     Route: 058
     Dates: start: 20191115, end: 20191121
  177. MERREM [Concomitant]
     Active Substance: MEROPENEM
     Indication: PRODUCT USED FOR UNKNOWN INDICATION
     Dosage: 1 GRAM, 8 HOUR
     Dates: start: 20191113, end: 20191123
  178. PROTONIX [Concomitant]
     Active Substance: PANTOPRAZOLE SODIUM
     Dosage: 40 MILLIGRAM, 1 PER 1 DAY
     Route: 042
     Dates: start: 20191202, end: 20191214
  179. TOBRAMYCIN SULPHATE [Concomitant]
     Indication: PRODUCT USED FOR UNKNOWN INDICATION
     Dosage: 370 MILLIGRAM
     Route: 042
     Dates: start: 20191126, end: 20191203

REACTIONS (2)
  - Haemorrhage [Fatal]
  - Acute kidney injury [Not Recovered/Not Resolved]

NARRATIVE: CASE EVENT DATE: 20191214
